FAERS Safety Report 9471535 (Version 2)
Quarter: 2013Q4

REPORT INFORMATION
  Report Type: Spontaneous
  Country: IT (occurrence: IT)
  Receive Date: 20130822
  Receipt Date: 20131122
  Transmission Date: 20140711
  Serious: Yes (Other)
  Sender: FDA-Public Use
  Company Number: IT-WATSON-2013-15099

PATIENT
  Age: 68 Year
  Sex: Male

DRUGS (4)
  1. RISPERIDONE ACTAVIS [Suspect]
     Indication: AFFECTIVE DISORDER
     Dosage: 4 MG, DAILY
     Route: 048
     Dates: start: 20121210, end: 20130603
  2. DEPAKIN [Concomitant]
     Indication: MANIA
     Dosage: 500 MG, UNK
     Route: 065
  3. AKINETON                           /00079501/ [Concomitant]
     Indication: MANIA
     Dosage: 4 MG, UNK
     Route: 048
  4. TAVOR                              /00273201/ [Concomitant]
     Indication: MANIA
     Dosage: 5 MG, UNK
     Route: 048

REACTIONS (2)
  - Agitation [Not Recovered/Not Resolved]
  - Drug ineffective [Not Recovered/Not Resolved]
